FAERS Safety Report 13608658 (Version 2)
Quarter: 2017Q2

REPORT INFORMATION
  Report Type: Spontaneous
  Country: US (occurrence: US)
  Receive Date: 20170602
  Receipt Date: 20170612
  Transmission Date: 20170830
  Serious: Yes (Hospitalization, Other)
  Sender: FDA-Public Use
  Company Number: US-ALEXION PHARMACEUTICALS INC.-A201705953

PATIENT
  Age: 12 Year
  Sex: Male

DRUGS (2)
  1. STRENSIQ [Suspect]
     Active Substance: ASFOTASE ALFA
     Indication: HYPOPHOSPHATASIA
     Dosage: 80 MG, TIW
     Route: 058
  2. STRENSIQ [Suspect]
     Active Substance: ASFOTASE ALFA
     Dosage: 120 MG, TIW
     Route: 058

REACTIONS (9)
  - Fatigue [Unknown]
  - Injection site reaction [Unknown]
  - Meningitis [Unknown]
  - Injection site erythema [Unknown]
  - Musculoskeletal pain [Unknown]
  - Drug ineffective [Unknown]
  - Injection site bruising [Unknown]
  - Injection site swelling [Unknown]
  - Weight increased [Unknown]
